FAERS Safety Report 21848162 (Version 1)
Quarter: 2023Q1

REPORT INFORMATION
  Report Type: Report from Study
  Country: US (occurrence: US)
  Receive Date: 20230111
  Receipt Date: 20230111
  Transmission Date: 20230418
  Serious: No
  Sender: FDA-Public Use
  Company Number: US-ABBVIE-4230759

PATIENT
  Sex: Female

DRUGS (1)
  1. SKYRIZI [Suspect]
     Active Substance: RISANKIZUMAB-RZAA
     Indication: Psoriasis
     Route: 058
     Dates: start: 20220428

REACTIONS (5)
  - Pain [Not Recovered/Not Resolved]
  - Influenza [Recovering/Resolving]
  - Myalgia [Recovering/Resolving]
  - Pyrexia [Unknown]
  - Chills [Unknown]
